FAERS Safety Report 13029504 (Version 1)
Quarter: 2016Q4

REPORT INFORMATION
  Report Type: Spontaneous
  Country: US (occurrence: US)
  Receive Date: 20161215
  Receipt Date: 20161215
  Transmission Date: 20170207
  Serious: Yes (Hospitalization)
  Sender: FDA-Public Use
  Company Number: None

PATIENT
  Age: 84 Year
  Sex: Male
  Weight: 64.13 kg

DRUGS (15)
  1. LIPITOR [Concomitant]
     Active Substance: ATORVASTATIN CALCIUM
  2. CETUXIMAB [Suspect]
     Active Substance: CETUXIMAB
     Indication: SQUAMOUS CELL CARCINOMA OF HEAD AND NECK
     Route: 042
     Dates: start: 20161109, end: 20161207
  3. COSOPT [Concomitant]
     Active Substance: DORZOLAMIDE HYDROCHLORIDE\TIMOLOL MALEATE
  4. TOPROL XL [Concomitant]
     Active Substance: METOPROLOL SUCCINATE
  5. FAMOTIDINE. [Concomitant]
     Active Substance: FAMOTIDINE
  6. POLYETHYLENE GLYCOL [Concomitant]
     Active Substance: POLYETHYLENE GLYCOLS
  7. XALATAN [Concomitant]
     Active Substance: LATANOPROST
  8. SENNA S [Suspect]
     Active Substance: DOCUSATE SODIUM\SENNA LEAF
  9. POTASSIUM CITRATE. [Concomitant]
     Active Substance: POTASSIUM CITRATE
  10. MUCINEX [Suspect]
     Active Substance: GUAIFENESIN
  11. ASPIRIN. [Concomitant]
     Active Substance: ASPIRIN
  12. MULTI-VITAMIN [Concomitant]
     Active Substance: .ALPHA.-TOCOPHEROL ACETATE, DL-\ASCORBIC ACID\CYANOCOBALAMIN\FLUORIDE ION\FOLIC ACID\NIACIN\PYRIDOXINE\RIBOFLAVIN\THIAMINE\VITAMIN A\VITAMIN D
  13. PROCHLORPERAZINE. [Concomitant]
     Active Substance: PROCHLORPERAZINE
  14. PALBOCICLIB [Suspect]
     Active Substance: PALBOCICLIB
     Indication: SQUAMOUS CELL CARCINOMA OF HEAD AND NECK
     Dosage: 125 MG DAYS 1-21 PO
     Route: 048
     Dates: start: 20161109, end: 20161129
  15. LEVOTHYROXINE. [Concomitant]
     Active Substance: LEVOTHYROXINE

REACTIONS (11)
  - White blood cell count decreased [None]
  - Haemoglobin decreased [None]
  - Hiatus hernia [None]
  - Asthenia [None]
  - Blood potassium decreased [None]
  - Platelet count decreased [None]
  - Condition aggravated [None]
  - Chest pain [None]
  - Weight decreased [None]
  - Dysphagia [None]
  - Decreased appetite [None]

NARRATIVE: CASE EVENT DATE: 20161209
